FAERS Safety Report 20920522 (Version 1)
Quarter: 2022Q2

REPORT INFORMATION
  Report Type: Spontaneous
  Country: US (occurrence: US)
  Receive Date: 20220606
  Receipt Date: 20220606
  Transmission Date: 20220720
  Serious: No
  Sender: FDA-Public Use
  Company Number: US-KARYOPHARM-2022KPT000530

PATIENT

DRUGS (14)
  1. XPOVIO [Suspect]
     Active Substance: SELINEXOR
     Indication: Plasma cell myeloma
     Dosage: 60 MG, WEEKLY
     Route: 048
     Dates: start: 20220407, end: 2022
  2. ACYCLOVIR [Concomitant]
     Active Substance: ACYCLOVIR
  3. ALLOPURINOL [Concomitant]
     Active Substance: ALLOPURINOL
  4. DARZALEX [Concomitant]
     Active Substance: DARATUMUMAB
  5. DEXAMETHASONE [Concomitant]
     Active Substance: DEXAMETHASONE
  6. DILAUDID [Concomitant]
     Active Substance: HYDROMORPHONE HYDROCHLORIDE
  7. FAMOTIDINE [Concomitant]
     Active Substance: FAMOTIDINE
  8. FENTANYL [Concomitant]
     Active Substance: FENTANYL
  9. GABAPENTIN [Concomitant]
     Active Substance: GABAPENTIN
  10. OMEPRAZOLE [Concomitant]
     Active Substance: OMEPRAZOLE
  11. POMALYST [Concomitant]
     Active Substance: POMALIDOMIDE
  12. PREDNISONE [Concomitant]
     Active Substance: PREDNISONE
  13. PROCHLORPERAZINE [Concomitant]
     Active Substance: PROCHLORPERAZINE
  14. XARELTO [Concomitant]
     Active Substance: RIVAROXABAN

REACTIONS (1)
  - Plasma cell myeloma [Unknown]

NARRATIVE: CASE EVENT DATE: 20220101
